FAERS Safety Report 16899310 (Version 2)
Quarter: 2022Q4

REPORT INFORMATION
  Report Type: Report from Study
  Country: JP (occurrence: JP)
  Receive Date: 20191009
  Receipt Date: 20221026
  Transmission Date: 20230113
  Serious: Yes (Hospitalization)
  Sender: FDA-Public Use
  Company Number: JP-TEVA TAKEDA YAKUHIN-2019-JP-006554J

PATIENT
  Age: 77 Year
  Sex: Male
  Weight: 75 kg

DRUGS (13)
  1. CANDESARTAN CILEXETIL [Suspect]
     Active Substance: CANDESARTAN CILEXETIL
     Indication: Hypertension
     Dosage: 8 MILLIGRAM DAILY; AFTER BREAKFAST
     Route: 065
     Dates: start: 20180606
  2. ESTAZOLAM [Suspect]
     Active Substance: ESTAZOLAM
     Indication: Insomnia
     Dosage: 6 MILLIGRAM DAILY; BEFORE BEDTIME
     Route: 048
  3. AMLODIPINE BESYLATE [Suspect]
     Active Substance: AMLODIPINE BESYLATE
     Indication: Hypertension
     Dosage: 5 MILLIGRAM DAILY; AFTER BREAKFAST
     Route: 048
  4. BISOPROLOL FUMARATE [Suspect]
     Active Substance: BISOPROLOL FUMARATE
     Indication: Hypertension
     Dosage: 2.5 MILLIGRAM DAILY; AFTER BREAKFAST
     Route: 048
  5. LASIX [Suspect]
     Active Substance: FUROSEMIDE
     Indication: Polyuria
     Dosage: 20 MILLIGRAM DAILY; AFTER BREAKFAST
     Route: 048
  6. NICORANDIL [Suspect]
     Active Substance: NICORANDIL
     Indication: Angina pectoris
     Dosage: 10 MILLIGRAM DAILY; AFTER BREAKFAST AND DINNER
     Route: 048
  7. ASPIRIN [Suspect]
     Active Substance: ASPIRIN
     Indication: Thrombosis
     Dosage: 200 MILLIGRAM DAILY; AFTER BREAKFAST AND DINNER
     Route: 048
  8. TICLOPIDINE HYDROCHLORIDE [Suspect]
     Active Substance: TICLOPIDINE HYDROCHLORIDE
     Indication: Thrombosis
     Dosage: 200 MILLIGRAM DAILY; AFTER BREAKFAST AND DINNER
     Route: 048
  9. LIPITOR [Suspect]
     Active Substance: ATORVASTATIN CALCIUM
     Indication: Dyslipidaemia
     Dosage: 5 MILLIGRAM DAILY; AFTER BREAKFAST
     Route: 048
  10. BELSOMRA [Suspect]
     Active Substance: SUVOREXANT
     Indication: Insomnia
     Dosage: 15 MILLIGRAM DAILY; AT SLEEPLESSNESS
     Route: 048
  11. NEXIUM [Suspect]
     Active Substance: ESOMEPRAZOLE MAGNESIUM
     Indication: Peptic ulcer
     Dosage: 20 MILLIGRAM DAILY; AFTER BREAKFAST
     Route: 048
  12. NEO-MINOPHAGEN C [Suspect]
     Active Substance: AMMONIUM GLYCYRRHIZATE
     Indication: Liver disorder
     Route: 042
  13. CROMOLYN SODIUM [Suspect]
     Active Substance: CROMOLYN SODIUM
     Indication: Product used for unknown indication
     Dosage: 6 DOSAGE FORMS DAILY;
     Route: 045

REACTIONS (1)
  - Large intestine polyp [Recovered/Resolved]

NARRATIVE: CASE EVENT DATE: 20181107
